FAERS Safety Report 8948207 (Version 1)
Quarter: 2012Q4

REPORT INFORMATION
  Report Type: Spontaneous
  Country: IT (occurrence: None)
  Receive Date: 20121127
  Receipt Date: 20121127
  Transmission Date: 20130627
  Serious: Yes (Hospitalization)
  Sender: FDA-Public Use
  Company Number: 2012-20117

PATIENT
  Age: 88 Year
  Sex: Female

DRUGS (8)
  1. CIPROFLOXACIN HYDROCHLORIDE (UNKNOWN) [Suspect]
     Indication: PNEUMONITIS
     Route: 048
     Dates: start: 20121016, end: 20121028
  2. TRAMADOL HYDROCHLORIDE (UNKNOWN) [Suspect]
     Indication: RIB FRACTURE
     Route: 048
     Dates: start: 20121016, end: 20121028
  3. LEVOTUSS (LEVODROPROPIZINE) [Concomitant]
  4. TOTALIP (ATORVASTATIN CALCIUM) [Concomitant]
  5. KARVEZIDE (HYDROCHLOROTHIAZIDE, IRBESARTAN) [Concomitant]
  6. LANSOPRAZOLE (LANSOPRAZOLE) [Concomitant]
  7. ACETYLSALICYLIC ACID (ACETYLSALICYLIC ACID) [Concomitant]
  8. LIBRADIN (BARNIDIPINE HYDROCHLORIDE) [Concomitant]

REACTIONS (2)
  - Eyelid oedema [None]
  - Erythema [None]
